FAERS Safety Report 23462124 (Version 1)
Quarter: 2024Q1

REPORT INFORMATION
  Report Type: Spontaneous
  Country: US (occurrence: None)
  Receive Date: 20240130
  Receipt Date: 20240130
  Transmission Date: 20240409
  Serious: Yes (Other)
  Sender: FDA-Public Use
  Company Number: None

PATIENT
  Age: 25 Year
  Sex: Female
  Weight: 54 kg

DRUGS (5)
  1. SEMAGLUTIDE [Suspect]
     Active Substance: SEMAGLUTIDE
     Indication: Weight decreased
     Dosage: FREQUENCY : MONTHLY;?
     Route: 030
     Dates: start: 20231224
  2. BUSPAR [Concomitant]
     Active Substance: BUSPIRONE HYDROCHLORIDE
  3. KLONOPIN [Concomitant]
     Active Substance: CLONAZEPAM
  4. SEMAGLUTIDE [Concomitant]
     Active Substance: SEMAGLUTIDE
  5. PHAZYME [Concomitant]
     Active Substance: DIMETHICONE 410

REACTIONS (1)
  - Pityriasis rosea [None]

NARRATIVE: CASE EVENT DATE: 20240116
